FAERS Safety Report 7164106-9 (Version None)
Quarter: 2010Q4

REPORT INFORMATION
  Report Type: 
  Country: None (occurrence: None)
  Receive Date: 20101123
  Receipt Date: 20100909
  Transmission Date: 20110411
  Serious: No
  Sender: FDA-Public Use
  Company Number: 018485

PATIENT
  Sex: Female
  Weight: 54.4 kg

DRUGS (3)
  1. CIMZIA [Suspect]
     Indication: CROHN'S DISEASE
     Dosage: DOSE 2 SHOTS SUBCUTANEOUS
     Route: 058
     Dates: start: 20100601
  2. TRAMADOL [Concomitant]
  3. ATIVAN [Concomitant]

REACTIONS (4)
  - FATIGUE [None]
  - HYPERSOMNIA [None]
  - MUSCULAR WEAKNESS [None]
  - PAIN IN EXTREMITY [None]
